FAERS Safety Report 19599920 (Version 1)
Quarter: 2021Q3

REPORT INFORMATION
  Report Type: Spontaneous
  Country: US (occurrence: US)
  Receive Date: 20210722
  Receipt Date: 20210722
  Transmission Date: 20211014
  Serious: Yes (Hospitalization)
  Sender: FDA-Public Use
  Company Number: US-OTSUKA-2018_007026

PATIENT
  Sex: Male

DRUGS (4)
  1. ABILIFY MAINTENA [Suspect]
     Active Substance: ARIPIPRAZOLE
     Indication: PRODUCT USED FOR UNKNOWN INDICATION
     Dosage: 400 MG, EVERY 4 WEEKS
     Route: 030
     Dates: start: 20180308
  2. ABILIFY [Suspect]
     Active Substance: ARIPIPRAZOLE
     Dosage: 7.5 MG, (ACHIEVED BY SPLITTING 15 MG)
     Route: 065
     Dates: start: 20180403
  3. ABILIFY [Suspect]
     Active Substance: ARIPIPRAZOLE
     Indication: AFFECTIVE DISORDER
     Dosage: 20 MG, UNK
     Route: 065
     Dates: start: 2017
  4. ABILIFY [Suspect]
     Active Substance: ARIPIPRAZOLE
     Dosage: 30 MG, UNK
     Route: 065
     Dates: start: 2017

REACTIONS (12)
  - Thinking abnormal [Unknown]
  - Obsessive-compulsive disorder [Not Recovered/Not Resolved]
  - Wrong technique in product usage process [Unknown]
  - Libido disorder [Not Recovered/Not Resolved]
  - Psychotic disorder [Unknown]
  - Product use in unapproved indication [Unknown]
  - Drug level increased [Unknown]
  - Adverse event [Unknown]
  - Condition aggravated [Not Recovered/Not Resolved]
  - Anxiety [Not Recovered/Not Resolved]
  - Hallucination [Unknown]
  - Akathisia [Unknown]
